FAERS Safety Report 9602326 (Version 2)
Quarter: 2013Q4

REPORT INFORMATION
  Report Type: Spontaneous
  Country: AU (occurrence: AU)
  Receive Date: 20131007
  Receipt Date: 20131016
  Transmission Date: 20140711
  Serious: Yes (Other)
  Sender: FDA-Public Use
  Company Number: PHHY2013AU110164

PATIENT
  Age: 60 Year
  Sex: Female

DRUGS (1)
  1. GILENYA [Suspect]
     Dosage: UNK
     Route: 048
     Dates: start: 20111109

REACTIONS (3)
  - Thyroid neoplasm [Unknown]
  - Lymphocytic infiltration [Unknown]
  - Hepatic cyst [Unknown]
